FAERS Safety Report 8854996 (Version 1)
Quarter: 2012Q4

REPORT INFORMATION
  Report Type: 
  Country: US (occurrence: US)
  Receive Date: 20121023
  Receipt Date: 20121023
  Transmission Date: 20130627
  Serious: No
  Sender: FDA-Public Use
  Company Number: US-TEVA-365305USA

PATIENT
  Age: 29 Year
  Sex: Male

DRUGS (3)
  1. NUVIGIL [Suspect]
     Indication: NARCOLEPSY
     Dosage: 250 Milligram Daily;
     Route: 048
  2. VITAMINS [Concomitant]
     Dosage: occsionally
  3. COLD MEDICINE [Concomitant]

REACTIONS (3)
  - Drug tolerance [Not Recovered/Not Resolved]
  - Drug effect decreased [Not Recovered/Not Resolved]
  - Drug screen positive [Not Recovered/Not Resolved]
